FAERS Safety Report 9643271 (Version 1)
Quarter: 2013Q4

REPORT INFORMATION
  Report Type: Report from Study
  Country: US (occurrence: US)
  Receive Date: 20131024
  Receipt Date: 20131024
  Transmission Date: 20140711
  Serious: Yes (Hospitalization, Other)
  Sender: FDA-Public Use
  Company Number: US-ABBVIE-13P-163-1157886-00

PATIENT
  Age: 49 Year
  Sex: Female
  Weight: 67.19 kg

DRUGS (22)
  1. HUMIRA [Suspect]
     Indication: CROHN^S DISEASE
     Dosage: ONE DOSE
     Dates: start: 20130202, end: 20130202
  2. HUMIRA [Suspect]
     Dosage: ONE DOSE
     Dates: start: 20130216, end: 20130216
  3. HUMIRA [Suspect]
     Dates: start: 20130302, end: 20130630
  4. PENTASA [Suspect]
     Indication: CROHN^S DISEASE
     Dates: end: 2013
  5. FISH OIL [Suspect]
     Indication: PRODUCT USED FOR UNKNOWN INDICATION
     Dates: end: 2013
  6. FLEXERIL [Suspect]
     Indication: PRODUCT USED FOR UNKNOWN INDICATION
     Dates: end: 2013
  7. RANITIDINE [Suspect]
     Indication: PRODUCT USED FOR UNKNOWN INDICATION
     Dates: end: 2013
  8. CYMBALTA [Suspect]
     Indication: INTERVERTEBRAL DISC DEGENERATION
     Dates: end: 2013
  9. CYMBALTA [Suspect]
     Dates: start: 2013
  10. VITAMIN C [Concomitant]
     Indication: VITAMIN SUPPLEMENTATION
  11. MULTIVITAMIN [Concomitant]
     Indication: VITAMIN SUPPLEMENTATION
  12. LOPRIN [Concomitant]
     Indication: HEPATIC STEATOSIS
  13. DEXILANT [Concomitant]
     Indication: GASTROOESOPHAGEAL REFLUX DISEASE
  14. DEXILANT [Concomitant]
     Indication: HIATUS HERNIA
  15. ZANAFLEX [Concomitant]
     Indication: MUSCLE SPASMS
  16. ROZEREM [Concomitant]
     Indication: INSOMNIA
  17. ATIVAN [Concomitant]
     Indication: INSOMNIA
  18. ONDANSETRON [Concomitant]
     Indication: NAUSEA
  19. PATANOL [Concomitant]
     Indication: DRY EYE
  20. RESTASIS [Concomitant]
     Indication: DRY EYE
  21. PROBIOTICS [Concomitant]
     Indication: CROHN^S DISEASE
  22. FLU VACCINE [Concomitant]
     Indication: PRODUCT USED FOR UNKNOWN INDICATION
     Dates: start: 20130925, end: 20130925

REACTIONS (13)
  - Varicose vein [Recovered/Resolved]
  - Haematoma [Recovered/Resolved]
  - Diarrhoea [Unknown]
  - Dehydration [Unknown]
  - Abdominal pain [Not Recovered/Not Resolved]
  - Cystitis [Recovered/Resolved]
  - Blood potassium decreased [Unknown]
  - Colitis [Unknown]
  - Pancreatitis [Not Recovered/Not Resolved]
  - Asthenia [Not Recovered/Not Resolved]
  - Pancreatitis [Not Recovered/Not Resolved]
  - Lipase increased [Not Recovered/Not Resolved]
  - Amylase increased [Not Recovered/Not Resolved]
